FAERS Safety Report 6100154-5 (Version None)
Quarter: 2009Q1

REPORT INFORMATION
  Report Type: 
  Country: None (occurrence: None)
  Receive Date: 20090303
  Receipt Date: 20090226
  Transmission Date: 20090719
  Serious: Yes (Other)
  Sender: FDA-Public Use
  Company Number: US-ASTRAZENECA-2009UW05355

PATIENT

DRUGS (5)
  1. SEROQUEL [Suspect]
     Indication: BIPOLAR I DISORDER
     Route: 048
     Dates: start: 20090201
  2. CYMBALTA [Suspect]
     Route: 065
  3. CYMBALTA [Suspect]
  4. SOMA [Concomitant]
  5. VALIUM [Concomitant]

REACTIONS (1)
  - TOXIC ENCEPHALOPATHY [None]
